FAERS Safety Report 24938393 (Version 1)
Quarter: 2025Q1

REPORT INFORMATION
  Report Type: Spontaneous
  Country: US (occurrence: US)
  Receive Date: 20250206
  Receipt Date: 20250206
  Transmission Date: 20250409
  Serious: No
  Sender: SANOFI AVENTIS
  Company Number: US-SA-2025SA034955

PATIENT
  Sex: Female

DRUGS (23)
  1. DUPIXENT [Suspect]
     Active Substance: DUPILUMAB
     Indication: Dermatitis atopic
     Dosage: 300 MG QOW
     Route: 058
  2. ACETAMINOPHEN [Concomitant]
     Active Substance: ACETAMINOPHEN
  3. AMLODIPINE [Concomitant]
     Active Substance: AMLODIPINE BESYLATE
  4. ASPIRIN [Concomitant]
     Active Substance: ASPIRIN
  5. DICYCLOMINE [Concomitant]
     Active Substance: DICYCLOMINE HYDROCHLORIDE
  6. DOCUSATE SODIUM [Concomitant]
     Active Substance: DOCUSATE SODIUM
  7. DOXEPIN HYDROCHLORIDE [Concomitant]
     Active Substance: DOXEPIN HYDROCHLORIDE
  8. DULOXETINE [Concomitant]
     Active Substance: DULOXETINE
  9. EYE HEALTH [Concomitant]
     Active Substance: AMINO ACIDS\BARLEY MALT
  10. FLUTICASONE [Concomitant]
     Active Substance: FLUTICASONE
  11. Isosorbid [Concomitant]
  12. LACTASE [Concomitant]
     Active Substance: LACTASE
  13. LAMOTRIGINE [Concomitant]
     Active Substance: LAMOTRIGINE
  14. LEVOTHYROXINE [Concomitant]
     Active Substance: LEVOTHYROXINE
  15. LOSARTAN POTASSIUM [Concomitant]
     Active Substance: LOSARTAN POTASSIUM
  16. LOSARTAN POTASSIUM [Concomitant]
     Active Substance: LOSARTAN POTASSIUM
  17. MONTELUKAST [Concomitant]
     Active Substance: MONTELUKAST
  18. OLOPATADINE [Concomitant]
     Active Substance: OLOPATADINE
  19. OMEPRAZOLE [Concomitant]
     Active Substance: OMEPRAZOLE
  20. PRAVASTATIN [Concomitant]
     Active Substance: PRAVASTATIN
  21. PROBIOTICS NOS [Concomitant]
     Active Substance: PROBIOTICS NOS
  22. SYFOVRE [Concomitant]
     Active Substance: PEGCETACOPLAN
  23. VITAMIN D3 [Concomitant]
     Active Substance: CHOLECALCIFEROL

REACTIONS (1)
  - Dry skin [Not Recovered/Not Resolved]
